FAERS Safety Report 15578175 (Version 1)
Quarter: 2018Q4

REPORT INFORMATION
  Report Type: Spontaneous
  Country: US (occurrence: US)
  Receive Date: 20181102
  Receipt Date: 20181102
  Transmission Date: 20190205
  Serious: No
  Sender: FDA-Public Use
  Company Number: US-HORIZON-ACT-0334-2018

PATIENT
  Age: 30 Year
  Sex: Female

DRUGS (3)
  1. SPORANOX [Concomitant]
     Active Substance: ITRACONAZOLE
  2. BACTRIM [Concomitant]
     Active Substance: SULFAMETHOXAZOLE\TRIMETHOPRIM
  3. ACTIMMUNE [Suspect]
     Active Substance: INTERFERON GAMMA-1B
     Indication: CHRONIC GRANULOMATOUS DISEASE
     Dosage: 0.32 ML THREE TIMES A WEEK
     Dates: start: 20151026

REACTIONS (1)
  - Influenza like illness [Recovered/Resolved]
